FAERS Safety Report 23077223 (Version 2)
Quarter: 2024Q1

REPORT INFORMATION
  Report Type: Spontaneous
  Country: US (occurrence: US)
  Receive Date: 20231018
  Receipt Date: 20240222
  Transmission Date: 20240409
  Serious: Yes (Other)
  Sender: FDA-Public Use
  Company Number: US-ABBVIE-5454503

PATIENT
  Sex: Male
  Weight: 91.171 kg

DRUGS (16)
  1. LUPRON [Suspect]
     Active Substance: LEUPROLIDE ACETATE
     Indication: Blood testosterone increased
     Dosage: LAST ADMIN DATE: 2022
     Route: 030
     Dates: start: 20220610
  2. LUPRON [Suspect]
     Active Substance: LEUPROLIDE ACETATE
     Indication: Prostatic specific antigen increased
     Dosage: LAST ADMIN DATE: 2023
     Route: 030
     Dates: start: 20230804
  3. LUPRON [Suspect]
     Active Substance: LEUPROLIDE ACETATE
     Route: 030
     Dates: start: 20240124
  4. LUPRON [Suspect]
     Active Substance: LEUPROLIDE ACETATE
     Dosage: LAST ADMIN DATE: 2023
     Route: 030
     Dates: start: 20231030
  5. LUPRON [Suspect]
     Active Substance: LEUPROLIDE ACETATE
     Dosage: LAST ADMIN DATE: 2023
     Route: 030
     Dates: start: 20230512
  6. LUPRON [Suspect]
     Active Substance: LEUPROLIDE ACETATE
     Dosage: LAST ADMIN DATE: 2023
     Route: 030
     Dates: start: 20230217
  7. LUPRON [Suspect]
     Active Substance: LEUPROLIDE ACETATE
     Route: 030
     Dates: start: 20221125
  8. LUPRON [Suspect]
     Active Substance: LEUPROLIDE ACETATE
     Dosage: LAST ADMIN DATE: 2022
     Route: 030
     Dates: start: 20220513
  9. LUPRON [Suspect]
     Active Substance: LEUPROLIDE ACETATE
     Dosage: LAST ADMIN DATE: 2022
     Route: 030
     Dates: start: 20220902
  10. VITAMIN D [Concomitant]
     Active Substance: VITAMIN D NOS
     Indication: Product used for unknown indication
  11. CALCIUM CARBONATE [Concomitant]
     Active Substance: CALCIUM CARBONATE
     Indication: Product used for unknown indication
     Dosage: 500 MG CALCIUM (1,250 MG) TABLET 2 TABLET PO DAILY WITH VITAMIN D
     Route: 048
  12. ALLOPURINOL [Concomitant]
     Active Substance: ALLOPURINOL
     Indication: Gout
     Dosage: FREQUENCY: DAILY
     Route: 048
  13. PRAVASTATIN SODIUM [Concomitant]
     Active Substance: PRAVASTATIN SODIUM
     Indication: Product used for unknown indication
     Dosage: 40 MILLIGRAM
     Route: 048
  14. CELECOXIB [Concomitant]
     Active Substance: CELECOXIB
     Indication: Product used for unknown indication
     Route: 048
  15. CARVEDILOL [Concomitant]
     Active Substance: CARVEDILOL
     Indication: Product used for unknown indication
     Dosage: 3.125 MILLIGRAM
     Route: 048
  16. TYLENOL [Concomitant]
     Active Substance: ACETAMINOPHEN
     Indication: Product used for unknown indication
     Dosage: 300 MG ORAL PRN?ACETAMINOPHEN ORAL
     Route: 048

REACTIONS (5)
  - Back disorder [Unknown]
  - Prostate cancer [Unknown]
  - Hip arthroplasty [Unknown]
  - Hot flush [Unknown]
  - Arthropathy [Unknown]
